FAERS Safety Report 8164840 (Version 3)
Quarter: 2012Q4

REPORT INFORMATION
  Report Type: 
  Country: DE (occurrence: DE)
  Receive Date: 20111002
  Receipt Date: 20121108
  Transmission Date: 20130627
  Serious: Yes (Hospitalization)
  Sender: FDA-Public Use
  Company Number: PHHO2011DE15585

PATIENT
  Age: 67 Year
  Sex: Male
  Weight: 70 kg

DRUGS (4)
  1. RAD 666 [Suspect]
     Indication: RENAL TRANSPLANT
     Dosage: 3 mg, UNK
     Route: 048
     Dates: start: 20110824, end: 20110919
  2. MYFORTIC [Suspect]
     Indication: RENAL TRANSPLANT
     Dosage: 1440 mg, UNK
     Dates: start: 20110629, end: 20110908
  3. DECORTIN [Concomitant]
     Indication: RENAL TRANSPLANT
     Dosage: 5 mg, UNK
     Dates: start: 20110629
  4. PROGRAF [Concomitant]
     Dosage: UNK
     Dates: start: 20110919

REACTIONS (1)
  - Pancytopenia [Recovered/Resolved]
